FAERS Safety Report 19304054 (Version 1)
Quarter: 2021Q2

REPORT INFORMATION
  Report Type: Spontaneous
  Country: CN (occurrence: CN)
  Receive Date: 20210525
  Receipt Date: 20210525
  Transmission Date: 20210717
  Serious: Yes (Hospitalization, Other)
  Sender: FDA-Public Use
  Company Number: CN-009507513-2105CHN004875

PATIENT
  Age: 54 Year
  Sex: Male
  Weight: 57.5 kg

DRUGS (1)
  1. KEYTRUDA [Suspect]
     Active Substance: PEMBROLIZUMAB
     Indication: LUNG CARCINOMA CELL TYPE UNSPECIFIED RECURRENT
     Dosage: 200 MG, ONCE A DAY (QD)
     Route: 041
     Dates: start: 20201016, end: 20210415

REACTIONS (3)
  - Inappropriate schedule of product administration [Unknown]
  - Immune-mediated hepatic disorder [Recovering/Resolving]
  - Immune-mediated hepatic disorder [Recovering/Resolving]

NARRATIVE: CASE EVENT DATE: 20201016
